FAERS Safety Report 22131698 (Version 1)
Quarter: 2023Q1

REPORT INFORMATION
  Report Type: Spontaneous
  Country: US (occurrence: US)
  Receive Date: 20230323
  Receipt Date: 20230323
  Transmission Date: 20230417
  Serious: No
  Sender: FDA-Public Use
  Company Number: US-BAYER-2023A037419

PATIENT
  Age: 53 Year
  Sex: Female

DRUGS (1)
  1. GADAVIST [Suspect]
     Active Substance: GADOBUTROL
     Indication: Magnetic resonance imaging breast
     Dosage: UNK UNK, ONCE
     Route: 042
     Dates: start: 20230319, end: 20230319

REACTIONS (1)
  - Pruritus [None]

NARRATIVE: CASE EVENT DATE: 20230319
